FAERS Safety Report 6498208-7 (Version None)
Quarter: 2009Q4

REPORT INFORMATION
  Report Type: 
  Country: None (occurrence: None)
  Receive Date: 20091215
  Receipt Date: 20091210
  Transmission Date: 20100525
  Serious: Yes (Hospitalization)
  Sender: FDA-Public Use
  Company Number: A0834572A

PATIENT
  Age: 73 Year
  Sex: Male

DRUGS (6)
  1. LEUKERAN [Suspect]
     Dosage: 2MG PER DAY
     Route: 048
     Dates: start: 20060101
  2. FLOMAX [Concomitant]
  3. FINASTERIDE [Concomitant]
  4. ALLOPURINOL [Concomitant]
  5. AZT [Concomitant]
  6. BLOOD PRESSURE MEDICATION [Concomitant]

REACTIONS (1)
  - DYSPNOEA [None]
